FAERS Safety Report 17325462 (Version 1)
Quarter: 2020Q1

REPORT INFORMATION
  Report Type: Spontaneous
  Country: US (occurrence: US)
  Receive Date: 20200127
  Receipt Date: 20200127
  Transmission Date: 20200409
  Serious: No
  Sender: FDA-Public Use
  Company Number: US-REGENERON PHARMACEUTICALS, INC.-2018-47913

PATIENT

DRUGS (1)
  1. EYLEA [Suspect]
     Active Substance: AFLIBERCEPT
     Indication: PRODUCT USED FOR UNKNOWN INDICATION
     Dosage: MAY HAVE BEEN LARGER THAN 2MG DOSES

REACTIONS (3)
  - Overdose [Unknown]
  - Wrong technique in product usage process [Unknown]
  - Eye inflammation [Unknown]

NARRATIVE: CASE EVENT DATE: 201811
